FAERS Safety Report 23598387 (Version 1)
Quarter: 2024Q1

REPORT INFORMATION
  Report Type: Spontaneous
  Country: US (occurrence: US)
  Receive Date: 20240305
  Receipt Date: 20240305
  Transmission Date: 20240410
  Serious: No
  Sender: FDA-Public Use
  Company Number: US-ALKERMES INC.-ALK-2024-000577

PATIENT
  Age: 30 Year
  Sex: Male

DRUGS (2)
  1. VIVITROL [Suspect]
     Active Substance: NALTREXONE
     Indication: Drug dependence
     Dosage: 380 MILLIGRAM, QMO
     Route: 030
     Dates: start: 20240213
  2. VIVITROL [Suspect]
     Active Substance: NALTREXONE
     Indication: Alcoholism

REACTIONS (4)
  - Erectile dysfunction [Unknown]
  - Anhedonia [Unknown]
  - Libido decreased [Unknown]
  - Fatigue [Unknown]

NARRATIVE: CASE EVENT DATE: 20240213
